FAERS Safety Report 4781804-2 (Version None)
Quarter: 2005Q3

REPORT INFORMATION
  Report Type: 
  Country: None (occurrence: None)
  Receive Date: 20050914
  Receipt Date: 20050416
  Transmission Date: 20060218
  Serious: Yes (Hospitalization)
  Sender: FDA-Public Use
  Company Number: 163-20785-05040375

PATIENT
  Age: 68 Year
  Sex: Male
  Weight: 72 kg

DRUGS (8)
  1. THALOMID [Suspect]
     Indication: MULTIPLE MYELOMA
     Dosage: ORAL
     Route: 048
     Dates: start: 20040101
  2. DEXAMETHASONE [Suspect]
     Indication: MULTIPLE MYELOMA
  3. BORTEZOMIB (BORTEZOMIB) [Suspect]
     Indication: MULTIPLE MYELOMA
  4. ADRIAMYCIN PFS [Suspect]
     Indication: MULTIPLE MYELOMA
  5. CISPLATIN [Suspect]
     Indication: MULTIPLE MYELOMA
  6. CYCLOPHOSPHAMIDE [Suspect]
     Indication: MULTIPLE MYELOMA
  7. ETOPOSIDE [Suspect]
     Indication: MULTIPLE MYELOMA
  8. MELPHALAN (MELPHALAN) [Suspect]
     Dates: start: 20041105, end: 20041105

REACTIONS (5)
  - DEHYDRATION [None]
  - NAUSEA [None]
  - OEDEMA PERIPHERAL [None]
  - PNEUMONIA VIRAL [None]
  - PYREXIA [None]
